FAERS Safety Report 5203529-1 (Version None)
Quarter: 2007Q1

REPORT INFORMATION
  Report Type: 
  Country: None (occurrence: None)
  Receive Date: 20070110
  Receipt Date: 20070103
  Transmission Date: 20070707
  Serious: Yes (Other)
  Sender: FDA-Public Use
  Company Number: GB-GLAXOSMITHKLINE-B0453376A

PATIENT
  Age: 27 Year
  Sex: Male
  Weight: 69 kg

DRUGS (1)
  1. NIQUITIN 14MG [Suspect]
     Dosage: 14MG PER DAY
     Route: 062
     Dates: start: 20061025, end: 20061210

REACTIONS (3)
  - PAIN IN EXTREMITY [None]
  - RASH GENERALISED [None]
  - RASH PRURITIC [None]
